FAERS Safety Report 8006983-5 (Version None)
Quarter: 2011Q4

REPORT INFORMATION
  Report Type: 
  Country: None (occurrence: None)
  Receive Date: 20111227
  Receipt Date: 20111223
  Transmission Date: 20120403
  Serious: Yes (Death, Other)
  Sender: FDA-Public Use
  Company Number: PHHY2011DK96141

PATIENT
  Sex: Female

DRUGS (13)
  1. MIRTAZAPINE [Suspect]
     Indication: SCHIZOAFFECTIVE DISORDER
     Dosage: 30 MG, QD
     Route: 048
     Dates: end: 20111023
  2. LITHIUM CITRATE [Suspect]
     Dosage: 1.5 DF (IN THE EVENING)
     Route: 048
     Dates: end: 20111023
  3. FERRO DURETTER [Concomitant]
  4. ALPRAZOLAM [Concomitant]
  5. CENTYL MED KALIUMKLORID [Concomitant]
  6. ZIPRASIDONE HYDROCHLORIDE [Suspect]
     Dosage: STYRKE: 40 MG
     Route: 048
     Dates: end: 20111023
  7. FRAGMIN [Concomitant]
  8. AMLODIPINE [Concomitant]
  9. ZIPRASIDONE HYDROCHLORIDE [Suspect]
     Indication: SCHIZOAFFECTIVE DISORDER
     Dosage: 40 MG, BID
     Route: 048
     Dates: end: 20111023
  10. LITHIUM CITRATE [Suspect]
     Dosage: DOSIS: 1+0+0+1.5, STYRKE: 6 MMOL LI+
     Route: 048
     Dates: end: 20111023
  11. FUROSEMIDE [Concomitant]
  12. LITHIUM CITRATE [Suspect]
     Indication: SCHIZOAFFECTIVE DISORDER
     Dosage: 1 DF (IN THE MORNING)
     Route: 048
     Dates: end: 20111023
  13. ESCITALOPRAM [Suspect]
     Indication: SCHIZOAFFECTIVE DISORDER
     Dosage: 30 MG, QD (DAILY DOSE OF 1 TABLET IN THE MORNING AND 1.5 TABLET IN THE EVENING)
     Route: 048
     Dates: end: 20111023

REACTIONS (12)
  - ORGAN FAILURE [None]
  - NEUROLEPTIC MALIGNANT SYNDROME [None]
  - RHABDOMYOLYSIS [None]
  - RENAL FAILURE [None]
  - LACTIC ACIDOSIS [None]
  - CONSTIPATION [None]
  - MYOCARDIAL INFARCTION [None]
  - HUMERUS FRACTURE [None]
  - FALL [None]
  - PYREXIA [None]
  - CARDIAC HYPERTROPHY [None]
  - DYSPNOEA [None]
